FAERS Safety Report 10376412 (Version 2)
Quarter: 2014Q3

REPORT INFORMATION
  Report Type: Spontaneous
  Country: IT (occurrence: None)
  Receive Date: 20140806
  Receipt Date: 20140814
  Transmission Date: 20150326
  Serious: Yes (Other)
  Sender: FDA-Public Use
  Company Number: AUR-APL-2014-08264

PATIENT
  Age: 60 Year
  Sex: Female

DRUGS (1)
  1. AMOXICILLIN (AMOXICILLIN) UNKNOWN [Suspect]
     Active Substance: AMOXICILLIN
     Indication: PROPHYLAXIS
     Dosage: TOTAL
     Route: 048
     Dates: start: 20140713, end: 20140713

REACTIONS (4)
  - Medication error [None]
  - Angioedema [None]
  - Urticaria [None]
  - Enteritis [None]

NARRATIVE: CASE EVENT DATE: 20140714
